FAERS Safety Report 10436535 (Version 1)
Quarter: 2014Q3

REPORT INFORMATION
  Report Type: Spontaneous
  Country: US (occurrence: US)
  Receive Date: 20140908
  Receipt Date: 20140908
  Transmission Date: 20150326
  Serious: No
  Sender: FDA-Public Use
  Company Number: US-BRISTOL-MYERS SQUIBB COMPANY-20199774

PATIENT
  Age: 44 Year
  Sex: Female

DRUGS (6)
  1. TRAZODONE HYDROCHLORIDE. [Concomitant]
     Active Substance: TRAZODONE HYDROCHLORIDE
  2. AGGRENOX [Concomitant]
     Active Substance: ASPIRIN\DIPYRIDAMOLE
  3. ABILIFY [Suspect]
     Active Substance: ARIPIPRAZOLE
     Dosage: INITIALLY 30MG
  4. ZOLOFT [Concomitant]
     Active Substance: SERTRALINE HYDROCHLORIDE
     Dosage: 1200 MG
  5. TEGRETOL [Interacting]
     Active Substance: CARBAMAZEPINE
  6. ZYPREXA [Concomitant]
     Active Substance: OLANZAPINE

REACTIONS (3)
  - Prescribed overdose [Unknown]
  - Drug interaction [Unknown]
  - Therapeutic response decreased [Unknown]
